FAERS Safety Report 23786260 (Version 1)
Quarter: 2024Q2

REPORT INFORMATION
  Report Type: Spontaneous
  Country: US (occurrence: US)
  Receive Date: 20240426
  Receipt Date: 20240426
  Transmission Date: 20240715
  Serious: No
  Sender: FDA-Public Use
  Company Number: US-AUROBINDO-AUR-APL-2024-003225

PATIENT
  Age: 79 Year
  Sex: Female
  Weight: 75.2 kg

DRUGS (3)
  1. BIMATOPROST [Suspect]
     Active Substance: BIMATOPROST
     Indication: Growth of eyelashes
     Dosage: UNK ONCE AND THE OTHER EVERY OTHER NIGHT
     Route: 065
     Dates: start: 20240115, end: 20240115
  2. BIMATOPROST [Suspect]
     Active Substance: BIMATOPROST
     Dosage: UNK ONCE AND THE OTHER EVERY OTHER NIGHT
     Route: 065
     Dates: start: 20240115, end: 20240115
  3. ROSUVASTATIN [Concomitant]
     Active Substance: ROSUVASTATIN
     Indication: Product used for unknown indication
     Dosage: UNK
     Route: 065

REACTIONS (4)
  - Eye paraesthesia [Unknown]
  - Eye pruritus [Recovered/Resolved]
  - Product use in unapproved indication [Unknown]
  - Product substitution issue [Unknown]

NARRATIVE: CASE EVENT DATE: 20240116
